FAERS Safety Report 5400956-4 (Version None)
Quarter: 2007Q3

REPORT INFORMATION
  Report Type: 
  Country: None (occurrence: None)
  Receive Date: 20070730
  Receipt Date: 20070725
  Transmission Date: 20080115
  Serious: Yes (Other)
  Sender: FDA-Public Use
  Company Number: IE-BOEHRINGER INGELHEIM PHARMACEUTICALS, INC.-2007-UK-02413IE

PATIENT
  Sex: Female

DRUGS (4)
  1. SPIRIVA [Suspect]
     Indication: CHRONIC OBSTRUCTIVE PULMONARY DISEASE
     Route: 055
     Dates: start: 20070611, end: 20070621
  2. SERETIDE EVOHALER [Concomitant]
  3. PREDNISOLONE [Concomitant]
  4. CLARITHROMYCIN [Concomitant]

REACTIONS (6)
  - CONFUSIONAL STATE [None]
  - COORDINATION ABNORMAL [None]
  - DIZZINESS [None]
  - GAIT DISTURBANCE [None]
  - URINE FLOW DECREASED [None]
  - XEROPHTHALMIA [None]
